FAERS Safety Report 7855665 (Version 5)
Quarter: 2013Q3

REPORT INFORMATION
  Report Type: Spontaneous
  Country: US (occurrence: US)
  Receive Date: 20110315
  Receipt Date: 20130719
  Transmission Date: 20140515
  Serious: Yes (Death, Hospitalization, Other)
  Sender: FDA-Public Use
  Company Number: US-TYCO HEALTHCARE/MALLINCKRODT-T201100548

PATIENT
  Age: 60 Year
  Sex: Female

DRUGS (6)
  1. CONRAY 43 [Suspect]
     Indication: SPINAL MYELOGRAM
     Dosage: 15 ML, SINGLE
     Route: 037
     Dates: start: 20110307, end: 20110307
  2. ISOVUE [Suspect]
     Indication: SPINAL MYELOGRAM
  3. DEPO-MEDROL [Suspect]
     Dosage: UNK
     Route: 037
     Dates: start: 20110307, end: 20110307
  4. THYROID THERAPY [Concomitant]
     Indication: THYROID DISORDER
     Dosage: UNK
  5. EFFEXOR                            /01233801/ [Concomitant]
     Dosage: UNK
  6. PRAVACOL [Concomitant]
     Indication: BLOOD CHOLESTEROL INCREASED
     Dosage: UNK

REACTIONS (12)
  - Pain [Recovering/Resolving]
  - Nausea [Recovering/Resolving]
  - Gait disturbance [Recovering/Resolving]
  - Personality change [Recovering/Resolving]
  - Headache [Recovering/Resolving]
  - Inflammation [Not Recovered/Not Resolved]
  - Asthenia [Recovering/Resolving]
  - Memory impairment [Recovering/Resolving]
  - Vomiting [Recovering/Resolving]
  - Hypoaesthesia [Recovering/Resolving]
  - Incorrect route of drug administration [Unknown]
  - Wrong drug administered [Unknown]
